FAERS Safety Report 4927628-4 (Version None)
Quarter: 2006Q1

REPORT INFORMATION
  Report Type: 
  Country: None (occurrence: None)
  Receive Date: 20060228
  Receipt Date: 20051011
  Transmission Date: 20060701
  Serious: Yes (Hospitalization, Disabling, Other)
  Sender: FDA-Public Use
  Company Number: US-MERCK-0510USA07080

PATIENT
  Age: 49 Year
  Sex: Male
  Weight: 93 kg

DRUGS (29)
  1. FAMOTIDINE [Concomitant]
     Indication: GASTROOESOPHAGEAL REFLUX DISEASE
     Route: 065
  2. NITROQUICK [Concomitant]
     Indication: CHEST PAIN
     Route: 065
  3. VIOXX [Suspect]
     Indication: ARTHRITIS
     Route: 048
     Dates: start: 20001227
  4. VIOXX [Suspect]
     Indication: GOUT
     Route: 048
     Dates: start: 20001227
  5. PRILOSEC [Concomitant]
     Indication: GASTROOESOPHAGEAL REFLUX DISEASE
     Route: 065
  6. ACETAMINOPHEN AND HYDROCODONE BITARTRATE [Concomitant]
     Indication: PAIN
     Route: 065
  7. [THERAPY UNSPECIFIED] [Concomitant]
     Route: 065
  8. ALLOPURINOL [Concomitant]
     Indication: GOUT
     Route: 065
  9. LIPITOR [Concomitant]
     Indication: BLOOD CHOLESTEROL
     Route: 065
  10. METHYLPREDNISOLONE [Concomitant]
     Indication: HYPERSENSITIVITY
     Route: 065
  11. METHYLPREDNISOLONE [Concomitant]
     Indication: ARTHRITIS
     Route: 065
  12. LISINOPRIL [Concomitant]
     Indication: BLOOD PRESSURE
     Route: 065
  13. NORVASC [Concomitant]
     Indication: HYPERTENSION
     Route: 065
  14. NORVASC [Concomitant]
     Indication: CHEST PAIN
     Route: 065
  15. MONOPRIL-HCT [Concomitant]
     Indication: HYPERTENSION
     Route: 065
  16. AUGMENTIN [Concomitant]
     Indication: INFECTION
     Route: 065
  17. ACETAMINOPHEN AND CODEINE [Concomitant]
     Indication: PAIN
     Route: 065
     Dates: start: 20040101
  18. TARKA [Concomitant]
     Indication: HYPERTENSION
     Route: 065
  19. METOPROLOL TARTRATE [Concomitant]
     Indication: BLOOD PRESSURE
     Route: 065
     Dates: start: 20040101
  20. SEREVENT [Concomitant]
     Indication: HYPERSENSITIVITY
     Route: 065
  21. PROPOXYPHENE HYDROCHLORIDE [Concomitant]
     Indication: PAIN
     Route: 065
  22. BEXTRA [Concomitant]
     Indication: ARTHRITIS
     Route: 065
     Dates: start: 20040516
  23. AMBIEN [Concomitant]
     Indication: INSOMNIA
     Route: 065
  24. ISOSORBIDE [Concomitant]
     Indication: CHEST PAIN
     Route: 065
  25. PLAVIX [Concomitant]
     Indication: CARDIAC OPERATION
     Route: 065
     Dates: start: 20040412
  26. PLAVIX [Concomitant]
     Indication: STENT PLACEMENT
     Route: 065
     Dates: start: 20040412
  27. IBUPROFEN [Concomitant]
     Indication: PAIN
     Route: 065
     Dates: start: 20040101
  28. ASPIRIN [Concomitant]
     Indication: PROPHYLAXIS
     Route: 065
     Dates: start: 20040412
  29. TEQUIN [Concomitant]
     Route: 065

REACTIONS (19)
  - ANGINA PECTORIS [None]
  - ANGINA UNSTABLE [None]
  - ARTHROPATHY [None]
  - BLOOD CHOLESTEROL INCREASED [None]
  - CARDIAC DISORDER [None]
  - CARDIOVASCULAR DISORDER [None]
  - CHEST PAIN [None]
  - CORONARY ARTERY DISEASE [None]
  - CORONARY ARTERY STENOSIS [None]
  - DEPRESSION [None]
  - GASTROOESOPHAGEAL REFLUX DISEASE [None]
  - HEADACHE [None]
  - HERNIA [None]
  - HYPERSENSITIVITY [None]
  - INFECTION [None]
  - INFLUENZA [None]
  - INSOMNIA [None]
  - NAUSEA [None]
  - NEPHROLITHIASIS [None]
